FAERS Safety Report 22049184 (Version 2)
Quarter: 2023Q1

REPORT INFORMATION
  Report Type: Spontaneous
  Country: CN (occurrence: CN)
  Receive Date: 20230301
  Receipt Date: 20230315
  Transmission Date: 20230418
  Serious: Yes (Other)
  Sender: FDA-Public Use
  Company Number: CN-ORGANON-O2302CHN002199

PATIENT
  Age: 43 Year
  Sex: Female

DRUGS (3)
  1. DESOGESTREL\ETHINYL ESTRADIOL [Suspect]
     Active Substance: DESOGESTREL\ETHINYL ESTRADIOL
     Dosage: UNK
     Route: 048
     Dates: end: 202212
  2. DESOGESTREL\ETHINYL ESTRADIOL [Suspect]
     Active Substance: DESOGESTREL\ETHINYL ESTRADIOL
     Dosage: UNK
     Route: 048
     Dates: start: 2023, end: 2023
  3. YASMIN [Suspect]
     Active Substance: DROSPIRENONE\ETHINYL ESTRADIOL
     Route: 048
     Dates: start: 20230123

REACTIONS (5)
  - COVID-19 pneumonia [Unknown]
  - Polymenorrhoea [Unknown]
  - Hypomenorrhoea [Recovering/Resolving]
  - Breast pain [Not Recovered/Not Resolved]
  - Breast enlargement [Unknown]

NARRATIVE: CASE EVENT DATE: 20220101
